FAERS Safety Report 8984618 (Version 2)
Quarter: 2014Q2

REPORT INFORMATION
  Report Type: Spontaneous
  Country: DE (occurrence: None)
  Receive Date: 20121217
  Receipt Date: 20140519
  Transmission Date: 20141212
  Serious: Yes (Other)
  Sender: FDA-Public Use
  Company Number: NGX_01488_2012

PATIENT
  Age: 77 Year
  Sex: Male

DRUGS (1)
  1. QUTENZA [Suspect]
     Indication: NOTALGIA PARAESTHETICA
     Route: 061
     Dates: start: 20121107, end: 20121107

REACTIONS (6)
  - Hyperventilation [None]
  - Application site pain [None]
  - Dizziness [None]
  - Pain [None]
  - Off label use [None]
  - Erythema [None]
